FAERS Safety Report 4339731-0 (Version None)
Quarter: 2004Q1

REPORT INFORMATION
  Report Type: 
  Country: None (occurrence: None)
  Receive Date: 20040329
  Receipt Date: 20040202
  Transmission Date: 20041129
  Serious: No
  Sender: FDA-Public Use
  Company Number: 04P-163-0249067-00

PATIENT
  Age: 43 Year
  Sex: Female
  Weight: 86.1834 kg

DRUGS (4)
  1. HUMIRA [Suspect]
     Indication: RHEUMATOID ARTHRITIS
     Dosage: 40 MG, 1 IN 2 WK, SUBCUTANEOUS
     Route: 058
     Dates: start: 20040119
  2. IBUPROFEN [Concomitant]
  3. LEVOTHYROXINE SODIUM [Concomitant]
  4. DYAZIDE [Concomitant]

REACTIONS (1)
  - ABDOMINAL PAIN UPPER [None]
